FAERS Safety Report 10244116 (Version 1)
Quarter: 2014Q1

REPORT INFORMATION
  Report Type: Spontaneous
  Country: US (occurrence: None)
  Receive Date: 20140306
  Receipt Date: 20140306
  Transmission Date: 20141002
  Serious: Yes (Other)
  Sender: FDA-Public Use
  Company Number: 163-21880-13081902

PATIENT
  Age: 68 Year
  Sex: Female
  Weight: 92.5 kg

DRUGS (3)
  1. REVLIMID (LENALIDOMIDE) (15 MILLIGRAM, CAPSULES) [Suspect]
     Indication: PLASMA CELL MYELOMA
     Dosage: 02/2011 - PERMANENTLY DISCONTINUED
     Route: 048
     Dates: start: 201102
  2. TYLENOL (PARACETAMOL) [Concomitant]
  3. SENOKOT-S (SENOKOT-S) [Concomitant]

REACTIONS (1)
  - Thrombosis [None]
